FAERS Safety Report 18478440 (Version 1)
Quarter: 2020Q4

REPORT INFORMATION
  Report Type: Report from Study
  Country: US (occurrence: US)
  Receive Date: 20201109
  Receipt Date: 20201109
  Transmission Date: 20210114
  Serious: Yes (Hospitalization, Other)
  Sender: FDA-Public Use
  Company Number: US-EMD SERONO-9191339

PATIENT
  Age: 59 Year
  Sex: Female
  Weight: 91 kg

DRUGS (3)
  1. REBIF [Suspect]
     Active Substance: INTERFERON BETA-1A
     Indication: MULTIPLE SCLEROSIS
     Route: 058
     Dates: start: 20080430, end: 202006
  2. REBIF [Suspect]
     Active Substance: INTERFERON BETA-1A
     Dosage: STARTED WITH TITRATION PACK
     Route: 058
     Dates: start: 20200720, end: 2020
  3. REBIF [Suspect]
     Active Substance: INTERFERON BETA-1A
     Route: 058
     Dates: start: 2020

REACTIONS (6)
  - Diaphragmatic paralysis [Not Recovered/Not Resolved]
  - Hepatotoxicity [Unknown]
  - Intestinal strangulation [Recovered/Resolved]
  - Pruritus [Not Recovered/Not Resolved]
  - Blood iron decreased [Unknown]
  - Knee operation [Not Recovered/Not Resolved]

NARRATIVE: CASE EVENT DATE: 2014
